FAERS Safety Report 6033847-9 (Version None)
Quarter: 2009Q1

REPORT INFORMATION
  Report Type: 
  Country: None (occurrence: None)
  Receive Date: 20090109
  Receipt Date: 20090109
  Transmission Date: 20090719
  Serious: Yes (Disabling)
  Sender: FDA-Public Use
  Company Number: None

PATIENT
  Age: 65 Year
  Sex: Female

DRUGS (12)
  1. FOSAMAX [Suspect]
     Indication: OSTEOPOROSIS
     Dosage: 70 MG WEEKLY ORAL
     Route: 048
     Dates: start: 20020101, end: 20080301
  2. PROTONIX [Concomitant]
  3. PREDNISONE [Concomitant]
  4. LYRICA [Concomitant]
  5. TOPROL-XL [Concomitant]
  6. LEXAPRO [Concomitant]
  7. COUMADIN [Concomitant]
  8. ZOCOR [Concomitant]
  9. FURADIL [Concomitant]
  10. PULMICORT-100 [Concomitant]
  11. XOPENEX [Concomitant]
  12. AMBIEN [Concomitant]

REACTIONS (3)
  - OSTEOLYSIS [None]
  - PAIN [None]
  - SECRETION DISCHARGE [None]
